FAERS Safety Report 4578482-4 (Version None)
Quarter: 2005Q1

REPORT INFORMATION
  Report Type: 
  Country: None (occurrence: None)
  Receive Date: 20050209
  Receipt Date: 20050128
  Transmission Date: 20050727
  Serious: Yes (Other)
  Sender: FDA-Public Use
  Company Number: 2005023679

PATIENT
  Age: 48 Year
  Sex: Male
  Weight: 79.3795 kg

DRUGS (6)
  1. BEXTRA [Suspect]
     Indication: BACK PAIN
     Dosage: 40 MG (20 MG, 2 IN 1 D), ORAL
     Route: 048
     Dates: start: 20040101, end: 20050127
  2. ATORVASTATIN(ATORVASTATIN) [Concomitant]
  3. SERTRALINE HCL [Concomitant]
  4. GABAPENTIN [Concomitant]
  5. ACETYLSALICYLIC ACID SRT [Concomitant]
  6. PRAMIPEXOLE (PRAMIPEXOLE) [Concomitant]

REACTIONS (5)
  - BLINDNESS [None]
  - MIGRAINE [None]
  - OPTIC ISCHAEMIC NEUROPATHY [None]
  - SCOTOMA [None]
  - VISION BLURRED [None]
